FAERS Safety Report 5132119-4 (Version None)
Quarter: 2006Q4

REPORT INFORMATION
  Report Type: 
  Country: None (occurrence: None)
  Receive Date: 20061017
  Receipt Date: 20060929
  Transmission Date: 20070319
  Serious: Yes (Hospitalization)
  Sender: FDA-Public Use
  Company Number: SP00991

PATIENT
  Age: 17 Year
  Sex: Male
  Weight: 71.2147 kg

DRUGS (2)
  1. COLAZAL [Suspect]
     Indication: COLITIS ULCERATIVE
     Dosage: 2.25 GMS / TID, ORAL
     Route: 048
     Dates: start: 20060821, end: 20060918
  2. PREDNISONE TAB [Concomitant]

REACTIONS (1)
  - OESOPHAGEAL ULCER [None]
